FAERS Safety Report 23811068 (Version 1)
Quarter: 2024Q2

REPORT INFORMATION
  Report Type: Spontaneous
  Country: US (occurrence: US)
  Receive Date: 20240502
  Receipt Date: 20240502
  Transmission Date: 20240716
  Serious: No
  Sender: FDA-Public Use
  Company Number: US-BIOGEN-2022BI01139394

PATIENT
  Sex: Female
  Weight: 42.6 kg

DRUGS (10)
  1. SPINRAZA [Suspect]
     Active Substance: NUSINERSEN
     Indication: Spinal muscular atrophy
     Dosage: LOADING DOSE
     Route: 050
     Dates: start: 201703
  2. SPINRAZA [Suspect]
     Active Substance: NUSINERSEN
     Dosage: LOADING DOSE
     Route: 050
  3. SPINRAZA [Suspect]
     Active Substance: NUSINERSEN
     Dosage: LOADING DOSE
     Route: 050
  4. SPINRAZA [Suspect]
     Active Substance: NUSINERSEN
     Dosage: LOADING DOSE
     Route: 050
  5. SPINRAZA [Suspect]
     Active Substance: NUSINERSEN
     Dosage: MAINTENANCE DOSE - LAST DOSE 10 JAN 2024
     Route: 050
  6. PROVENTIL [Concomitant]
     Active Substance: ALBUTEROL
     Indication: Productive cough
     Dosage: 1 AMPULE (2.5 MG TOTAL) BY INHALED (NEB) ROUTE EVERY 4 (FOUR) HOURS AS NEEDED.
     Route: 050
  7. PROAIR HFA [Concomitant]
     Indication: Airway secretion clearance therapy
     Dosage: USE WITH SPACER AND INHALE 2-4 PUFFS BY MOUTH EVERY 4 HOURS AS NEEDED
     Route: 050
  8. ZITHROMAX [Concomitant]
     Active Substance: AZITHROMYCIN DIHYDRATE
     Indication: Product used for unknown indication
     Dosage: 200 MG/5 ML SUSP
     Route: 050
  9. ZYRTEC [Concomitant]
     Active Substance: CETIRIZINE HYDROCHLORIDE
     Indication: Product used for unknown indication
     Dosage: TAKE 2.5 ML (2.5 MG) BY MOUTH DAILY.
     Route: 050
  10. SODIUM CHLORIDE [Concomitant]
     Active Substance: SODIUM CHLORIDE
     Indication: Premedication
     Dosage: 4ML INHALED(NEB) Q4HR AS NEEDED
     Route: 050

REACTIONS (2)
  - Muscle contracture [Not Recovered/Not Resolved]
  - Procedural pain [Recovered/Resolved]
